FAERS Safety Report 4795152-8 (Version None)
Quarter: 2005Q4

REPORT INFORMATION
  Report Type: 
  Country: None (occurrence: None)
  Receive Date: 20051006
  Receipt Date: 20051006
  Transmission Date: 20060501
  Serious: Yes (Other)
  Sender: FDA-Public Use
  Company Number: None

PATIENT
  Age: 71 Year
  Sex: Female
  Weight: 83.6 kg

DRUGS (7)
  1. OXACILLIN [Suspect]
     Indication: OSTEOMYELITIS
     Dosage: 2 GM EVERY 4 HR
     Dates: start: 20050811, end: 20050901
  2. ATENOLOL [Concomitant]
  3. LEXAPRO [Concomitant]
  4. IBUPROFEN [Concomitant]
  5. PROTONIX [Concomitant]
  6. LORCET-HD [Concomitant]
  7. IMODIUM [Concomitant]

REACTIONS (4)
  - ALANINE AMINOTRANSFERASE INCREASED [None]
  - ASPARTATE AMINOTRANSFERASE INCREASED [None]
  - BLOOD ALKALINE PHOSPHATASE INCREASED [None]
  - HEPATOTOXICITY [None]
